FAERS Safety Report 11923996 (Version 1)
Quarter: 2016Q1

REPORT INFORMATION
  Report Type: Spontaneous
  Country: JP (occurrence: JP)
  Receive Date: 20160118
  Receipt Date: 20160118
  Transmission Date: 20160526
  Serious: Yes (Death, Other)
  Sender: FDA-Public Use
  Company Number: JP-ROCHE-1667686

PATIENT
  Age: 48 Year
  Sex: Female
  Weight: 57 kg

DRUGS (12)
  1. DOXIL [Suspect]
     Active Substance: DOXORUBICIN HYDROCHLORIDE
     Indication: OVARIAN CANCER
  2. METGLUCO [Concomitant]
     Active Substance: METFORMIN HYDROCHLORIDE
     Indication: DIABETES MELLITUS
     Route: 048
     Dates: start: 20130122
  3. TRAMAL [Concomitant]
     Active Substance: TRAMADOL
     Indication: CANCER PAIN
     Route: 048
     Dates: start: 20150925
  4. URSO [Concomitant]
     Active Substance: URSODIOL
     Indication: PROPHYLAXIS
     Route: 048
     Dates: start: 20141125, end: 20150217
  5. MAGMITT [Concomitant]
     Active Substance: MAGNESIUM OXIDE
     Indication: POST PROCEDURAL CONSTIPATION
     Route: 048
     Dates: start: 20140707, end: 20151006
  6. AVASTIN [Suspect]
     Active Substance: BEVACIZUMAB
  7. AVASTIN [Suspect]
     Active Substance: BEVACIZUMAB
  8. GEMCITABINE [Suspect]
     Active Substance: GEMCITABINE\GEMCITABINE HYDROCHLORIDE
     Indication: OVARIAN CANCER
     Dosage: IT ADMINISTERS TO DAY1 AND DAY8, AND DAY15 IS [YASUKUSURI] CYCLE OF THE 21ST.?COMPLETED TREATMENT CY
     Route: 041
     Dates: start: 20141007, end: 20150210
  9. NEXIUM [Concomitant]
     Active Substance: ESOMEPRAZOLE MAGNESIUM
     Indication: PROPHYLAXIS AGAINST GASTROINTESTINAL ULCER
     Route: 048
     Dates: start: 20150824
  10. AVASTIN [Suspect]
     Active Substance: BEVACIZUMAB
     Indication: OVARIAN CANCER
     Dosage: TREATMENT LINE: GEM+BEV
     Route: 041
     Dates: start: 20141007, end: 20150210
  11. GLACTIV [Concomitant]
     Active Substance: SITAGLIPTIN
     Indication: DIABETES MELLITUS
     Route: 048
     Dates: start: 20140421
  12. LIPITOR [Concomitant]
     Active Substance: ATORVASTATIN CALCIUM
     Indication: HYPERLIPIDAEMIA
     Route: 048
     Dates: start: 20130827

REACTIONS (7)
  - Enteritis infectious [Not Recovered/Not Resolved]
  - Dehydration [Unknown]
  - Proteinuria [Recovering/Resolving]
  - Pulmonary embolism [Fatal]
  - Hypertension [Recovering/Resolving]
  - Diarrhoea [Not Recovered/Not Resolved]
  - Renal failure [Unknown]

NARRATIVE: CASE EVENT DATE: 20150302
